FAERS Safety Report 24697377 (Version 1)
Quarter: 2024Q4

REPORT INFORMATION
  Report Type: Spontaneous
  Country: DK (occurrence: None)
  Receive Date: 20241204
  Receipt Date: 20241204
  Transmission Date: 20250115
  Serious: Yes (Life-Threatening, Hospitalization)
  Sender: ACS DOBFAR
  Company Number: DK-ACS-20240526

PATIENT
  Age: 37 Year
  Sex: Female

DRUGS (1)
  1. CEFTRIAXONE [Suspect]
     Active Substance: CEFTRIAXONE
     Indication: Typhoid fever

REACTIONS (1)
  - Jarisch-Herxheimer reaction [Recovering/Resolving]
